FAERS Safety Report 23673856 (Version 1)
Quarter: 2024Q1

REPORT INFORMATION
  Report Type: Spontaneous
  Country: JP (occurrence: None)
  Receive Date: 20240326
  Receipt Date: 20240326
  Transmission Date: 20240410
  Serious: Yes (Other)
  Sender: FDA-Public Use
  Company Number: 2024A040115

PATIENT
  Age: 88 Year
  Sex: Female

DRUGS (7)
  1. DAPAGLIFLOZIN [Suspect]
     Active Substance: DAPAGLIFLOZIN
     Indication: Chronic kidney disease
     Route: 048
     Dates: start: 20231226, end: 202402
  2. ASPIRIN\LANSOPRAZOLE [Concomitant]
     Active Substance: ASPIRIN\LANSOPRAZOLE
     Dosage: DOSE UNKNOWN
     Route: 048
  3. AMLODIPINE BESYLATE\IRBESARTAN [Concomitant]
     Active Substance: AMLODIPINE BESYLATE\IRBESARTAN
     Dosage: DOSE UNKNOWN
     Route: 048
  4. ROSUVASTATIN [Concomitant]
     Active Substance: ROSUVASTATIN
     Route: 048
  5. ZOLPIDEM TARTRATE [Concomitant]
     Active Substance: ZOLPIDEM TARTRATE
     Route: 048
  6. SENNASIDE [Concomitant]
     Dosage: DOSE UNKNOWN
     Route: 048
  7. HERBALS [Concomitant]
     Active Substance: HERBALS
     Indication: Chronic kidney disease
     Route: 048

REACTIONS (8)
  - Cerebral infarction [Unknown]
  - Limb discomfort [Recovered/Resolved]
  - Dizziness [Recovered/Resolved]
  - Dehydration [Recovered/Resolved]
  - Hypoaesthesia [Recovered/Resolved]
  - Pain in extremity [Recovered/Resolved]
  - Pruritus [Recovered/Resolved]
  - Nausea [Recovered/Resolved]

NARRATIVE: CASE EVENT DATE: 20240209
